FAERS Safety Report 8828930 (Version 5)
Quarter: 2013Q2

REPORT INFORMATION
  Report Type: Spontaneous
  Country: US (occurrence: US)
  Receive Date: 20121009
  Receipt Date: 20130529
  Transmission Date: 20140414
  Serious: No
  Sender: FDA-Public Use
  Company Number: US-009507513-1209USA009809

PATIENT
  Sex: Male

DRUGS (5)
  1. VICTRELIS [Suspect]
     Indication: HEPATITIS C
     Dosage: UNK
     Route: 048
     Dates: start: 20120721, end: 20130209
  2. REBETOL [Suspect]
     Indication: HEPATITIS C
     Dosage: UNK
     Route: 048
     Dates: start: 20120623, end: 20130209
  3. REBETOL [Suspect]
     Dosage: UNK
     Dates: start: 2012
  4. PEGASYS [Suspect]
     Indication: HEPATITIS C
     Dosage: UNK
     Dates: start: 20120623, end: 20130209
  5. PEGASYS [Suspect]
     Dosage: UNK
     Dates: start: 2012

REACTIONS (13)
  - Wheezing [Unknown]
  - Oedema [Unknown]
  - Ear pain [Unknown]
  - Injection site reaction [Unknown]
  - Oropharyngeal pain [Unknown]
  - Epistaxis [Unknown]
  - Rash [Unknown]
  - Fatigue [Unknown]
  - Anaemia [Unknown]
  - Anaemia [Unknown]
  - Wheezing [Unknown]
  - Dyspnoea [Unknown]
  - Dyspnoea [Unknown]
